FAERS Safety Report 9220922 (Version 1)
Quarter: 2013Q2

REPORT INFORMATION
  Report Type: Spontaneous
  Country: FR (occurrence: FR)
  Receive Date: 20130409
  Receipt Date: 20130409
  Transmission Date: 20140414
  Serious: Yes (Life-Threatening)
  Sender: FDA-Public Use
  Company Number: FR-ELI_LILLY_AND_COMPANY-FR201304002231

PATIENT
  Age: 55 Year
  Sex: Male

DRUGS (5)
  1. GEMZAR [Suspect]
     Indication: LUNG NEOPLASM MALIGNANT
     Dosage: 1000 MG/M2, OTHER
     Route: 042
     Dates: start: 20121119, end: 20130102
  2. INNOHEP [Concomitant]
     Indication: PULMONARY EMBOLISM
  3. FLECAINE [Concomitant]
     Indication: ATRIAL FIBRILLATION
  4. ALPRAZOLAM [Concomitant]
     Indication: ANXIETY
  5. FLUCONAZOLE [Concomitant]
     Indication: FUNGAL INFECTION

REACTIONS (1)
  - Guillain-Barre syndrome [Recovering/Resolving]
